FAERS Safety Report 4436459-3 (Version None)
Quarter: 2004Q3

REPORT INFORMATION
  Report Type: 
  Country: None (occurrence: None)
  Receive Date: 20040830
  Receipt Date: 20040519
  Transmission Date: 20050211
  Serious: No
  Sender: FDA-Public Use
  Company Number: US-BRISTOL-MYERS SQUIBB COMPANY-12591145

PATIENT
  Age: 23 Year
  Sex: Female
  Weight: 77 kg

DRUGS (4)
  1. ABILIFY [Suspect]
     Indication: OBSESSIVE-COMPULSIVE DISORDER
     Route: 048
  2. ABILIFY [Suspect]
     Indication: ANXIETY
     Route: 048
  3. ABILIFY [Suspect]
     Indication: DEPRESSION
     Route: 048
  4. RISPERDAL [Concomitant]

REACTIONS (4)
  - ANXIETY [None]
  - FATIGUE [None]
  - INSOMNIA [None]
  - TREMOR [None]
